FAERS Safety Report 7399184-5 (Version None)
Quarter: 2011Q2

REPORT INFORMATION
  Report Type: 
  Country: None (occurrence: None)
  Receive Date: 20110407
  Receipt Date: 20110330
  Transmission Date: 20111010
  Serious: Yes (Death, Other)
  Sender: FDA-Public Use
  Company Number: HU-PFIZER INC-2011071743

PATIENT
  Age: 53 Year
  Sex: Female

DRUGS (3)
  1. CYTARABINE [Suspect]
     Indication: LEUKAEMIA CUTIS
  2. VEPESID [Suspect]
     Indication: LEUKAEMIA CUTIS
  3. IDARUBICIN HCL [Suspect]
     Indication: LEUKAEMIA CUTIS

REACTIONS (3)
  - VASCULITIS [None]
  - SEPSIS [None]
  - PANCYTOPENIA [None]
